FAERS Safety Report 7754382-3 (Version None)
Quarter: 2011Q3

REPORT INFORMATION
  Report Type: 
  Country: None (occurrence: None)
  Receive Date: 20110915
  Receipt Date: 20110907
  Transmission Date: 20111222
  Serious: No
  Sender: FDA-Public Use
  Company Number: US-ASTRAZENECA-2011SE14961

PATIENT
  Age: 83 Year
  Sex: Female

DRUGS (2)
  1. UNSPECIFIED [Concomitant]
  2. NEXIUM [Suspect]
     Route: 048

REACTIONS (7)
  - HYPOVITAMINOSIS [None]
  - MEMORY IMPAIRMENT [None]
  - GASTRIC DISORDER [None]
  - GASTRIC ULCER [None]
  - KIDNEY INFECTION [None]
  - GASTRIC POLYPS [None]
  - MALAISE [None]
